FAERS Safety Report 12037139 (Version 2)
Quarter: 2016Q1

REPORT INFORMATION
  Report Type: Spontaneous
  Country: IT (occurrence: IT)
  Receive Date: 20160208
  Receipt Date: 20160224
  Transmission Date: 20160526
  Serious: Yes (Disabling, Other)
  Sender: FDA-Public Use
  Company Number: IT-ACCORD-037692

PATIENT
  Age: 60 Year
  Sex: Male

DRUGS (2)
  1. SERTRALINE [Suspect]
     Active Substance: SERTRALINE HYDROCHLORIDE
     Indication: MAJOR DEPRESSION
     Dosage: INITIALLY STARTED AT LOW DOSE 50 MG/DAY, THEN GRADUALLY INCREASED UP TO 200 MG/DAY.
     Dates: start: 201409
  2. MIRTAZAPINE. [Concomitant]
     Active Substance: MIRTAZAPINE
     Indication: DEPRESSION
     Dates: start: 201409

REACTIONS (3)
  - Dysgraphia [Recovered/Resolved]
  - Resting tremor [Recovered/Resolved]
  - Dyskinesia [Recovered/Resolved]
